APPROVED DRUG PRODUCT: LANTHANUM CARBONATE
Active Ingredient: LANTHANUM CARBONATE
Strength: EQ 500MG BASE
Dosage Form/Route: TABLET, CHEWABLE;ORAL
Application: A090978 | Product #001 | TE Code: AB
Applicant: NATCO PHARMA LTD
Approved: Aug 11, 2017 | RLD: No | RS: No | Type: RX